FAERS Safety Report 12162984 (Version 1)
Quarter: 2016Q1

REPORT INFORMATION
  Report Type: Spontaneous
  Country: US (occurrence: US)
  Receive Date: 20160309
  Receipt Date: 20160309
  Transmission Date: 20160526
  Serious: No
  Sender: FDA-Public Use
  Company Number: US-ROCHE-1540024

PATIENT
  Sex: Female

DRUGS (2)
  1. XOLAIR [Suspect]
     Active Substance: OMALIZUMAB
     Indication: IDIOPATHIC URTICARIA
     Route: 065
     Dates: start: 201411
  2. REMICADE [Concomitant]
     Active Substance: INFLIXIMAB

REACTIONS (3)
  - Glucose tolerance impaired [Unknown]
  - Joint swelling [Unknown]
  - Urticaria [Unknown]
